FAERS Safety Report 9372312 (Version 1)
Quarter: 2013Q2

REPORT INFORMATION
  Report Type: Report from Study
  Country: US (occurrence: US)
  Receive Date: 20130627
  Receipt Date: 20130627
  Transmission Date: 20140414
  Serious: Yes (Death)
  Sender: FDA-Public Use
  Company Number: US-MYLANLABS-2012S1020372

PATIENT
  Age: 58 Year
  Sex: Male

DRUGS (18)
  1. CLOZAPINE TABLETS [Suspect]
     Indication: SCHIZOAFFECTIVE DISORDER
     Route: 048
     Dates: start: 200810, end: 20120826
  2. CLONAZEPAM [Concomitant]
     Route: 048
  3. CAPTOPRIL [Concomitant]
     Route: 048
  4. ATORVASTATIN [Concomitant]
     Route: 048
  5. CLOPIDOGREL [Concomitant]
     Route: 048
  6. CYMBALTA [Concomitant]
     Route: 048
  7. ESCITALOPRAM [Concomitant]
     Route: 048
  8. ALBUTEROL [Concomitant]
     Dosage: Q4HRS
     Route: 055
  9. NAMENDA [Concomitant]
  10. SPIRIVA [Concomitant]
     Dosage: 1 PUFF QD PRN
  11. BYSTOLIC [Concomitant]
  12. NEXIUM [Concomitant]
     Dosage: 1/DAY
     Route: 048
  13. RANITIDINE [Concomitant]
  14. SIMVASTATIN [Concomitant]
     Route: 048
  15. ASA [Concomitant]
  16. STOOL SOFTENER [Concomitant]
     Dosage: 3/DAY
  17. ATROVENT [Concomitant]
     Route: 055
  18. KLONOPIN [Concomitant]

REACTIONS (1)
  - Death [Fatal]
